FAERS Safety Report 6508215-3 (Version None)
Quarter: 2009Q4

REPORT INFORMATION
  Report Type: 
  Country: None (occurrence: None)
  Receive Date: 20091221
  Receipt Date: 20081223
  Transmission Date: 20100525
  Serious: No
  Sender: FDA-Public Use
  Company Number: US-ASTRAZENECA-2008UW28701

PATIENT
  Age: 80 Year
  Sex: Female
  Weight: 73.5 kg

DRUGS (1)
  1. CRESTOR [Suspect]
     Dosage: 5 MG
     Route: 048
     Dates: start: 20081218

REACTIONS (2)
  - EPISTAXIS [None]
  - NASAL DISCOMFORT [None]
